FAERS Safety Report 4758089-6 (Version None)
Quarter: 2005Q3

REPORT INFORMATION
  Report Type: 
  Country: None (occurrence: None)
  Receive Date: 20050831
  Receipt Date: 20050704
  Transmission Date: 20060218
  Serious: Yes (Hospitalization)
  Sender: FDA-Public Use
  Company Number: JP-MERCK-0507USA00760

PATIENT
  Age: 87 Year
  Sex: Female

DRUGS (11)
  1. ETODOLAC [Concomitant]
     Route: 048
  2. MUCOSOLVAN [Concomitant]
     Route: 048
  3. CRAVIT [Suspect]
     Route: 048
  4. LAC-B [Concomitant]
     Route: 048
  5. RHYTHMY [Concomitant]
     Route: 048
  6. LOXONIN [Suspect]
     Indication: PAIN
     Route: 048
     Dates: start: 20050624, end: 20050624
  7. NITRODERM [Concomitant]
     Route: 065
     Dates: start: 20050625
  8. PENTCILLIN [Concomitant]
     Route: 048
     Dates: start: 20050625, end: 20050707
  9. PURSENNID [Concomitant]
     Route: 048
  10. PEPCID [Suspect]
     Route: 048
  11. PRIMPERAN INJ [Concomitant]
     Route: 048

REACTIONS (1)
  - DEPRESSED LEVEL OF CONSCIOUSNESS [None]
